FAERS Safety Report 11999362 (Version 3)
Quarter: 2016Q2

REPORT INFORMATION
  Report Type: Spontaneous
  Country: US (occurrence: US)
  Receive Date: 20160204
  Receipt Date: 20160404
  Transmission Date: 20160815
  Serious: Yes (Death)
  Sender: FDA-Public Use
  Company Number: US-009507513-1602USA001388

PATIENT
  Age: 73 Year
  Sex: Male

DRUGS (1)
  1. EMEND [Suspect]
     Active Substance: APREPITANT
     Dosage: 125/80 MG (TRIFOLD PACK)
     Route: 048
     Dates: start: 20150303

REACTIONS (1)
  - Death [Fatal]

NARRATIVE: CASE EVENT DATE: 20150927
